FAERS Safety Report 16539449 (Version 1)
Quarter: 2019Q3

REPORT INFORMATION
  Report Type: Spontaneous
  Country: US (occurrence: US)
  Receive Date: 20190705
  Receipt Date: 20190705
  Transmission Date: 20191004
  Serious: Yes (Death)
  Sender: FDA-Public Use
  Company Number: None

PATIENT
  Age: 63 Year
  Sex: Male
  Weight: 107.55 kg

DRUGS (1)
  1. NUEDEXTA [Suspect]
     Active Substance: DEXTROMETHORPHAN HYDROBROMIDE\QUINIDINE SULFATE
     Indication: AFFECT LABILITY
     Route: 048
     Dates: start: 20181121, end: 20190608

REACTIONS (5)
  - Agitation [None]
  - Platelet count decreased [None]
  - Respiratory arrest [None]
  - Gait disturbance [None]
  - Bronchitis [None]

NARRATIVE: CASE EVENT DATE: 20190608
